FAERS Safety Report 16400604 (Version 1)
Quarter: 2019Q2

REPORT INFORMATION
  Report Type: Spontaneous
  Country: US (occurrence: US)
  Receive Date: 20190606
  Receipt Date: 20190606
  Transmission Date: 20190711
  Serious: Yes (Other)
  Sender: FDA-Public Use
  Company Number: US-TEVA-2019-US-1059280

PATIENT
  Age: 7 Decade
  Sex: Male

DRUGS (1)
  1. ZOLEDRONIC ACID [Suspect]
     Active Substance: ZOLEDRONIC ACID
     Indication: PLASMA CELL MYELOMA
     Dosage: INFUSION EVERY 3 MONTHS
     Route: 065

REACTIONS (2)
  - Oroantral fistula [Recovered/Resolved]
  - Osteonecrosis of jaw [Recovered/Resolved]
